FAERS Safety Report 20532028 (Version 2)
Quarter: 2022Q1

REPORT INFORMATION
  Report Type: Spontaneous
  Country: US (occurrence: US)
  Receive Date: 20220301
  Receipt Date: 20220307
  Transmission Date: 20220424
  Serious: Yes (Hospitalization)
  Sender: FDA-Public Use
  Company Number: US-GW PHARMA-202202USGW00888

PATIENT
  Sex: Female
  Weight: 25.85 kg

DRUGS (1)
  1. EPIDIOLEX [Suspect]
     Active Substance: CANNABIDIOL
     Indication: Lennox-Gastaut syndrome
     Dosage: 200 MILLIGRAM
     Route: 048
     Dates: start: 201901

REACTIONS (3)
  - Choking [Unknown]
  - Hypervigilance [Unknown]
  - Tremor [Unknown]
